FAERS Safety Report 13997200 (Version 4)
Quarter: 2018Q3

REPORT INFORMATION
  Report Type: Spontaneous
  Country: CA (occurrence: CA)
  Receive Date: 20170921
  Receipt Date: 20180904
  Transmission Date: 20181010
  Serious: Yes (Other)
  Sender: FDA-Public Use
  Company Number: CA-CELLTRION INC.-2017CA004299

PATIENT

DRUGS (5)
  1. INFLECTRA [Suspect]
     Active Substance: INFLIXIMAB-DYYB
     Indication: ANKYLOSING SPONDYLITIS
     Dosage: 600 MG, CYCLIC EVERY 0,2,6 WEEKS AND THEN EVERY 6 WEEKS FOR 12 MONTHS
     Route: 042
     Dates: start: 20170303, end: 2017
  2. INFLECTRA [Suspect]
     Active Substance: INFLIXIMAB-DYYB
     Dosage: UNK
     Route: 065
     Dates: start: 20180118
  3. DICLOFENAC [Concomitant]
     Active Substance: DICLOFENAC
     Dosage: 50 MG, BID
     Route: 065
  4. INFLECTRA [Suspect]
     Active Substance: INFLIXIMAB-DYYB
     Dosage: 600 MG, CYCLIC THEN EVERY 6WEEKS
     Route: 042
  5. INFLECTRA [Suspect]
     Active Substance: INFLIXIMAB-DYYB
     Dosage: 600 MG, EVERY 8 WEEKS AND IF HE FLARES EVERY 6 WEEKS
     Route: 065

REACTIONS (5)
  - Subcutaneous abscess [Recovered/Resolved]
  - Sensitivity to weather change [Unknown]
  - Condition aggravated [Unknown]
  - Fatigue [Unknown]
  - Cellulitis [Recovered/Resolved]
